FAERS Safety Report 6390881-7 (Version None)
Quarter: 2009Q4

REPORT INFORMATION
  Report Type: 
  Country: None (occurrence: None)
  Receive Date: 20091003
  Receipt Date: 20090916
  Transmission Date: 20100525
  Serious: Yes (Other)
  Sender: FDA-Public Use
  Company Number: DSA_41757_2009

PATIENT
  Age: 63 Year
  Sex: Male

DRUGS (1)
  1. ENALAPRIL MALEATE [Suspect]
     Indication: DRUG USE FOR UNKNOWN INDICATION
     Dosage: (10 MG,)
     Dates: end: 20090901

REACTIONS (4)
  - DYSPNOEA [None]
  - EATING DISORDER [None]
  - RHINORRHOEA [None]
  - SENSATION OF FOREIGN BODY [None]
